FAERS Safety Report 24891560 (Version 1)
Quarter: 2025Q1

REPORT INFORMATION
  Report Type: Spontaneous
  Country: SE (occurrence: SE)
  Receive Date: 20250127
  Receipt Date: 20250127
  Transmission Date: 20250409
  Serious: Yes (Other)
  Sender: MYLAN
  Company Number: SE-MYLANLABS-2025M1006332

PATIENT
  Age: 69 Year
  Sex: Female

DRUGS (5)
  1. ISOPTIN [Suspect]
     Active Substance: VERAPAMIL HYDROCHLORIDE
     Indication: Angina pectoris
     Dosage: 120 MILLIGRAM, QD
     Route: 065
     Dates: start: 20250108, end: 20250112
  2. ISOPTIN [Suspect]
     Active Substance: VERAPAMIL HYDROCHLORIDE
     Indication: Hypertension
  3. AMLODIPINE BESYLATE [Suspect]
     Active Substance: AMLODIPINE BESYLATE
     Indication: Product used for unknown indication
     Route: 065
  4. METOPROLOL [Suspect]
     Active Substance: METOPROLOL
     Indication: Product used for unknown indication
     Route: 065
  5. LEVOTHYROXINE SODIUM [Concomitant]
     Active Substance: LEVOTHYROXINE SODIUM
     Dosage: UNK, QD
     Route: 065

REACTIONS (10)
  - Asthma [Unknown]
  - Respiratory distress [Recovered/Resolved]
  - Hypersensitivity [Unknown]
  - Lip swelling [Unknown]
  - Swelling of eyelid [Unknown]
  - Throat tightness [Unknown]
  - Wheezing [Unknown]
  - Urticaria [Unknown]
  - Pruritus [Unknown]
  - Dyspnoea [Recovered/Resolved]

NARRATIVE: CASE EVENT DATE: 20250112
